FAERS Safety Report 8565122-2 (Version None)
Quarter: 2012Q3

REPORT INFORMATION
  Report Type: 
  Country: None (occurrence: None)
  Receive Date: 20120803
  Receipt Date: 20120802
  Transmission Date: 20120928
  Serious: Yes (Other)
  Sender: FDA-Public Use
  Company Number: US-PFIZER INC-2012171431

PATIENT
  Sex: Male
  Weight: 82 kg

DRUGS (4)
  1. CHANTIX [Suspect]
     Indication: SMOKING CESSATION THERAPY
     Dosage: 0.5 MG, 1X/DAY
     Route: 048
     Dates: start: 20120601, end: 20120601
  2. SPIRIVA [Concomitant]
     Dosage: UNK
  3. VITAMIN E [Concomitant]
     Dosage: UNK
  4. FLUTICASONE PROPIONATE [Concomitant]
     Dosage: UNK

REACTIONS (6)
  - HYPERTENSION [None]
  - GASTRIC DISORDER [None]
  - NIGHTMARE [None]
  - CHEST PAIN [None]
  - SUICIDAL IDEATION [None]
  - CONSTIPATION [None]
